FAERS Safety Report 9747784 (Version 1)
Quarter: 2013Q4

REPORT INFORMATION
  Report Type: Spontaneous
  Country: US (occurrence: US)
  Receive Date: 20131212
  Receipt Date: 20131212
  Transmission Date: 20140711
  Serious: Yes (Other)
  Sender: FDA-Public Use
  Company Number: US-009507513-1312USA003685

PATIENT
  Sex: Female

DRUGS (19)
  1. IMPLANON [Suspect]
     Indication: CONTRACEPTION
     Dosage: 1 ROD FOR 3 YEARS, SUBDERMAL IN LEFT ARM
     Route: 059
     Dates: start: 201010
  2. CRESTOR [Concomitant]
     Dosage: 20 MG PER DAY
  3. PERCOCET [Concomitant]
     Route: 048
  4. ATIVAN [Concomitant]
     Dosage: 1 MG AS NEEDED
  5. HYDROCODONE [Concomitant]
     Dosage: 325 MG AS NEEDED
  6. HYDROMORPHONE [Concomitant]
     Dosage: 4MG EVERY 6 HOURS
  7. AMBIEN [Concomitant]
     Dosage: 10 MG PER DAY
  8. COUMADIN [Concomitant]
     Dosage: 4 1/2 MG ON MONDAY AND FRIDAY ON THE OTHER DAYS SHE TAKES ONE 3MG TABLET A DAY
  9. LYRICA [Concomitant]
  10. RANEXA [Concomitant]
     Dosage: 500 MG 2 X DAY
  11. GABAPENTIN [Concomitant]
     Dosage: 800 MG 2 X DAY
  12. ZOFRAN [Concomitant]
     Dosage: 8 MG AS NEEDED (USUALLY TAKES 2 A DAY)
  13. HYDROXYUREA [Concomitant]
     Dosage: UNKNOWN
  14. CYANOCOBALAMIN [Concomitant]
     Dosage: 1000 MICROGRAM PER DAY
  15. FERROUS SULFATE [Concomitant]
     Dosage: 325 MG 2 X DAY
  16. NITROGLYCERIN [Concomitant]
     Dosage: AS NEEDED
  17. ASPIRIN [Concomitant]
     Dosage: 81MG 2 X DAY
  18. EFFIENT [Concomitant]
     Dosage: 10 MG PER DAY
  19. METOPROLOL SUCCINATE [Concomitant]
     Dosage: 25 MG 2 X DAY

REACTIONS (2)
  - Myocardial infarction [Unknown]
  - Incorrect drug administration duration [Unknown]
